FAERS Safety Report 19742149 (Version 3)
Quarter: 2021Q4

REPORT INFORMATION
  Report Type: Spontaneous
  Country: US (occurrence: US)
  Receive Date: 20210825
  Receipt Date: 20211025
  Transmission Date: 20220304
  Serious: Yes (Other)
  Sender: FDA-Public Use
  Company Number: US-LUPIN PHARMACEUTICALS INC.-2021-15257

PATIENT
  Age: 71 Year
  Sex: Female
  Weight: 68.03 kg

DRUGS (6)
  1. DOXYCYCLINE [Suspect]
     Active Substance: DOXYCYCLINE
     Indication: Skin infection
     Dosage: 100 MILLIGRAM, QD, FOR ONE WEEK
     Route: 065
     Dates: start: 2021, end: 2021
  2. DOXYCYCLINE [Suspect]
     Active Substance: DOXYCYCLINE
     Dosage: 100 MILLIGRAM, BID (ONE 100 MG CAPSULE IN THE MORNING AND ONE IN THE EVENING)
     Route: 065
     Dates: start: 202106, end: 2021
  3. DOXYCYCLINE [Suspect]
     Active Substance: DOXYCYCLINE
     Dosage: UNK
     Route: 065
  4. ZITHROMAX [Concomitant]
     Active Substance: AZITHROMYCIN DIHYDRATE
     Indication: Skin infection
     Dosage: UNK 6-7 TABLETS
     Route: 065
     Dates: start: 2021
  5. TETRACYCLINE [Concomitant]
     Active Substance: TETRACYCLINE
     Indication: Skin infection
     Dosage: UNK 3 DOSES
     Route: 065
  6. Ivermectina [Concomitant]
     Indication: Skin infection
     Dosage: 3 MILLIGRAM ON 1 DAY AND THEN OF DAY 2, 3 AND 4
     Route: 065

REACTIONS (9)
  - Skin infection [Not Recovered/Not Resolved]
  - Fatigue [Not Recovered/Not Resolved]
  - Insomnia [Not Recovered/Not Resolved]
  - Visual impairment [Not Recovered/Not Resolved]
  - Nausea [Not Recovered/Not Resolved]
  - Diplopia [Not Recovered/Not Resolved]
  - Arthralgia [Not Recovered/Not Resolved]
  - Drug ineffective [Unknown]
  - Vomiting [Not Recovered/Not Resolved]

NARRATIVE: CASE EVENT DATE: 20210101
